FAERS Safety Report 25274113 (Version 1)
Quarter: 2025Q2

REPORT INFORMATION
  Report Type: Spontaneous
  Country: US (occurrence: US)
  Receive Date: 20250506
  Receipt Date: 20250506
  Transmission Date: 20250716
  Serious: No
  Sender: UNITED THERAPEUTICS
  Company Number: US-UNITED THERAPEUTICS-UNT-2025-014281

PATIENT
  Sex: Female

DRUGS (1)
  1. REMODULIN [Suspect]
     Active Substance: TREPROSTINIL
     Indication: Pulmonary hypertension
     Route: 041

REACTIONS (4)
  - Insomnia [Unknown]
  - Anxiety [Unknown]
  - Discomfort [Unknown]
  - Impaired quality of life [Unknown]
